FAERS Safety Report 14281751 (Version 1)
Quarter: 2017Q4

REPORT INFORMATION
  Report Type: Spontaneous
  Country: US (occurrence: US)
  Receive Date: 20171213
  Receipt Date: 20171213
  Transmission Date: 20180321
  Serious: No
  Sender: FDA-Public Use
  Company Number: US-PFIZER INC-2017530907

PATIENT
  Age: 57 Year
  Sex: Female
  Weight: 84 kg

DRUGS (2)
  1. ATROPINE SULFATE/DIPHENOXYLATE HYDROCHLORIDE [Suspect]
     Active Substance: ATROPINE SULFATE\DIPHENOXYLATE HYDROCHLORIDE
     Indication: DIARRHOEA
     Dosage: 1 DF, DAILY
     Route: 048
     Dates: start: 201711
  2. XIGDUO XR [Suspect]
     Active Substance: DAPAGLIFLOZIN PROPANEDIOL\METFORMIN HYDROCHLORIDE
     Indication: DIABETES MELLITUS
     Dosage: 1000MG, TABLET, BY MOUTH, TWO TABLETS ONCE A DAY
     Route: 048
     Dates: end: 20171207

REACTIONS (9)
  - Drug effect incomplete [Not Recovered/Not Resolved]
  - Product use issue [Unknown]
  - Confusional state [Not Recovered/Not Resolved]
  - Irritability [Unknown]
  - Frustration tolerance decreased [Unknown]
  - Heart rate increased [Recovering/Resolving]
  - Nervousness [Not Recovered/Not Resolved]
  - Dry mouth [Not Recovered/Not Resolved]
  - Tremor [Not Recovered/Not Resolved]

NARRATIVE: CASE EVENT DATE: 2017
